FAERS Safety Report 4880151-8 (Version None)
Quarter: 2006Q1

REPORT INFORMATION
  Report Type: 
  Country: None (occurrence: None)
  Receive Date: 20060113
  Receipt Date: 20051125
  Transmission Date: 20060701
  Serious: Yes (Other)
  Sender: FDA-Public Use
  Company Number: PHRM2005FR03087

PATIENT
  Age: 56 Year
  Sex: Male
  Weight: 69 kg

DRUGS (2)
  1. ZOMETA [Suspect]
     Indication: DYSGLOBULINAEMIA
     Dosage: 4 MG, QMO
     Route: 042
     Dates: start: 20020701, end: 20050702
  2. ATORVASTATIN [Concomitant]
     Indication: DYSLIPIDAEMIA
     Dosage: 10 MG DAILY
     Route: 048
     Dates: start: 20010101

REACTIONS (7)
  - DENTAL CARE [None]
  - IMPAIRED HEALING [None]
  - INFECTION [None]
  - OSTEONECROSIS [None]
  - OSTEOSCLEROSIS [None]
  - SINUSITIS [None]
  - TOOTH EXTRACTION [None]
